FAERS Safety Report 8010331-4 (Version None)
Quarter: 2011Q4

REPORT INFORMATION
  Report Type: 
  Country: None (occurrence: None)
  Receive Date: 20111228
  Receipt Date: 20111215
  Transmission Date: 20120403
  Serious: Yes (Death, Hospitalization, Other)
  Sender: FDA-Public Use
  Company Number: US-ELI_LILLY_AND_COMPANY-US201112001742

PATIENT
  Sex: Male
  Weight: 56.7 kg

DRUGS (35)
  1. LEVOTHYROXINE SODIUM [Concomitant]
     Indication: HYPOTHYROIDISM
     Dosage: 1 DF, QD
     Route: 048
     Dates: start: 20110616
  2. VOLTAREN [Concomitant]
     Dosage: 2 G, TID
     Route: 061
  3. METAMUCIL-2 [Concomitant]
     Indication: DIARRHOEA
     Dosage: 30 ML, QD
     Route: 048
     Dates: start: 20110525
  4. BUMEX [Concomitant]
     Indication: OEDEMA
     Dosage: 1 DF, QOD
     Route: 048
     Dates: start: 20110628
  5. ACETAMINOPHEN [Concomitant]
     Dosage: 1 DF, QD
     Route: 048
     Dates: start: 20110922
  6. KENALOG [Concomitant]
     Indication: MUSCULOSKELETAL PAIN
     Dosage: UNK, QD
  7. CHLORHEXIDINE GLUCONATE [Concomitant]
     Indication: DENTAL CLEANING
     Dosage: 5 ML, BID
     Route: 002
     Dates: start: 20110922
  8. FENTANYL [Concomitant]
     Indication: PAIN
     Dosage: 1 DF, OTHER
     Route: 062
     Dates: start: 20110603
  9. PRILOSEC [Concomitant]
     Indication: ABDOMINAL DISCOMFORT
     Dosage: 1 DF, QD
     Route: 048
     Dates: start: 20110526
  10. MULTI-VITAMIN [Concomitant]
     Indication: SUPPLEMENTATION THERAPY
     Dosage: 1 DF, QD
     Route: 048
     Dates: start: 20110526
  11. TRAMADOL HCL [Concomitant]
     Indication: PAIN
     Dosage: 1 DF, BID
     Route: 048
     Dates: start: 20110526
  12. CALCIUM ACETATE [Concomitant]
     Indication: OSTEOPOROSIS
     Dosage: 1 DF, BID
     Route: 048
     Dates: start: 20110616
  13. FERREX [Concomitant]
     Indication: IRON DEFICIENCY ANAEMIA
     Dosage: 1 DF, BID
     Route: 048
     Dates: start: 20110915
  14. FORTEO [Suspect]
     Indication: OSTEOPOROSIS
     Dosage: 20 UG, QD
     Route: 058
     Dates: start: 20110624
  15. VOLTAREN [Concomitant]
     Indication: ARTHRALGIA
     Dosage: 4 G, TID
     Route: 061
     Dates: start: 20111011
  16. LISINOPRIL [Concomitant]
     Indication: CARDIAC FAILURE CONGESTIVE
     Dosage: 1 DF, QD
     Route: 048
     Dates: start: 20110526
  17. PLAVIX [Concomitant]
     Indication: CORONARY ARTERY DISEASE
     Dosage: 1 DF, QD
     Route: 048
     Dates: start: 20110526
  18. VITAMIN D [Concomitant]
     Indication: PROPHYLAXIS
     Dosage: 1 DF, QD
     Route: 048
     Dates: start: 20110526
  19. HYTRIN [Concomitant]
     Indication: BENIGN PROSTATIC HYPERPLASIA
     Dosage: 1 DF, QD
     Route: 048
     Dates: start: 20110526
  20. ACETAMINOPHEN [Concomitant]
     Indication: PAIN
     Dosage: 2 DF, QD
     Route: 048
     Dates: start: 20110922
  21. ARANESP [Concomitant]
     Indication: HAEMOGLOBIN ABNORMAL
     Dosage: 100 UG, 2/M
     Route: 058
     Dates: start: 20110401
  22. ASPIRIN CHILDREN [Concomitant]
     Indication: PROPHYLAXIS
     Dosage: 1 DF, QD
     Route: 048
     Dates: start: 20110503
  23. TRAMADOL HCL [Concomitant]
     Dosage: 1 DF, EVERY 6 HRS
     Route: 048
  24. DUONEB [Concomitant]
     Dosage: 1 DF, QID
     Route: 055
     Dates: start: 20111019
  25. EXTRA STRENGTH TYLENOL [Concomitant]
     Indication: BODY TEMPERATURE INCREASED
     Dosage: 1 DF, EVERY 6 HRS
     Route: 048
     Dates: start: 20110926
  26. TESTOSTERONE CYPIONATE [Concomitant]
     Indication: BENIGN PROSTATIC HYPERPLASIA
     Dosage: 1 ML, MONTHLY (1/M)
     Route: 030
     Dates: start: 20110401
  27. EXTRA STRENGTH TYLENOL [Concomitant]
     Dosage: 2 DF, EVERY 6 HRS
     Route: 048
  28. COREG CR [Concomitant]
     Indication: CARDIAC VALVE DISEASE
     Dosage: 1 DF, QD
     Route: 048
     Dates: start: 20110525
  29. DUONEB [Concomitant]
     Indication: BRONCHOSPASM
     Dosage: 1 DF, QD
     Route: 055
     Dates: start: 20110929
  30. PRAVACHOL [Concomitant]
     Indication: BLOOD CHOLESTEROL INCREASED
     Dosage: 1 DF, QD
     Route: 048
     Dates: start: 20111019
  31. MILK OF MAGNESIA TAB [Concomitant]
     Indication: CONSTIPATION
     Dosage: 30 ML, QD
     Route: 048
     Dates: start: 20110526
  32. MIRALAX [Concomitant]
     Indication: CONSTIPATION
     Dosage: 17 G, 3/W
     Route: 048
     Dates: start: 20110526
  33. CETIRIZINE HCL [Concomitant]
     Indication: HYPERSENSITIVITY
     Dosage: 1 DF, QD
     Route: 048
     Dates: start: 20110503
  34. FLONASE [Concomitant]
     Indication: RHINITIS PERENNIAL
     Dosage: 1 DF, QD
     Route: 045
     Dates: start: 20110526
  35. MUCINEX [Concomitant]
     Indication: COUGH
     Dosage: 1 DF, BID
     Route: 048
     Dates: start: 20110525

REACTIONS (7)
  - VOMITING [None]
  - ASTHENIA [None]
  - CARDIAC FAILURE CONGESTIVE [None]
  - NAUSEA [None]
  - PNEUMONIA ASPIRATION [None]
  - GENERAL PHYSICAL HEALTH DETERIORATION [None]
  - DYSPHAGIA [None]
